FAERS Safety Report 18815647 (Version 1)
Quarter: 2021Q1

REPORT INFORMATION
  Report Type: Spontaneous
  Country: US (occurrence: US)
  Receive Date: 20210131
  Receipt Date: 20210131
  Transmission Date: 20210419
  Serious: No
  Sender: FDA-Public Use
  Company Number: None

PATIENT
  Age: 52 Year
  Sex: Female
  Weight: 103.05 kg

DRUGS (4)
  1. CLONAZEPAM 0.5MG [Concomitant]
     Active Substance: CLONAZEPAM
     Dates: start: 20200124
  2. SERTRALINE [Concomitant]
     Active Substance: SERTRALINE HYDROCHLORIDE
     Dates: start: 20200124
  3. BUTRANS [Suspect]
     Active Substance: BUPRENORPHINE
     Indication: PAIN
     Dosage: ?          OTHER FREQUENCY:1 PATCH EVERY 7DS;?
     Route: 062
     Dates: start: 20200129, end: 20200205
  4. SYMBICORT 160/4.5MCG INHL [Concomitant]
     Dates: start: 20191114

REACTIONS (5)
  - Application site pruritus [None]
  - Skin lesion [None]
  - Application site induration [None]
  - Furuncle [None]
  - Application site erythema [None]

NARRATIVE: CASE EVENT DATE: 20200129
